FAERS Safety Report 7235249-6 (Version None)
Quarter: 2011Q1

REPORT INFORMATION
  Report Type: 
  Country: None (occurrence: None)
  Receive Date: 20110111
  Receipt Date: 20110106
  Transmission Date: 20110831
  Serious: Yes (Hospitalization)
  Sender: FDA-Public Use
  Company Number: 2011SP000644

PATIENT
  Age: 53 Year
  Sex: Male

DRUGS (1)
  1. REMERON [Suspect]
     Indication: FEELING ABNORMAL
     Dosage: 15 MG;QD;PO
     Route: 048
     Dates: start: 20101203

REACTIONS (1)
  - SLEEP APNOEA SYNDROME [None]
